FAERS Safety Report 7682242-5 (Version None)
Quarter: 2011Q3

REPORT INFORMATION
  Report Type: 
  Country: None (occurrence: None)
  Receive Date: 20110815
  Receipt Date: 20110802
  Transmission Date: 20111222
  Serious: Yes (Other)
  Sender: FDA-Public Use
  Company Number: CA-US-EMD SERONO, INC.-7065173

PATIENT
  Sex: Female

DRUGS (1)
  1. REBIF [Suspect]
     Indication: RELAPSING-REMITTING MULTIPLE SCLEROSIS
     Route: 058
     Dates: start: 19991227

REACTIONS (7)
  - FALL [None]
  - LUMBAR SPINAL STENOSIS [None]
  - TEMPOROMANDIBULAR JOINT SYNDROME [None]
  - EPILEPSY [None]
  - RHEUMATOID ARTHRITIS [None]
  - INSOMNIA [None]
  - CELLULITIS [None]
